FAERS Safety Report 15979161 (Version 2)
Quarter: 2019Q1

REPORT INFORMATION
  Report Type: Spontaneous
  Country: RO (occurrence: RO)
  Receive Date: 20190219
  Receipt Date: 20190306
  Transmission Date: 20190418
  Serious: Yes (Death, Other)
  Sender: FDA-Public Use
  Company Number: RO-SA-2019SA045506

PATIENT
  Age: 65 Year
  Sex: Female

DRUGS (3)
  1. MYOZYME [Suspect]
     Active Substance: ALGLUCOSIDASE ALFA
     Indication: GLYCOGEN STORAGE DISEASE TYPE II
     Dosage: 900 MG, QOW
     Route: 065
     Dates: start: 20180404, end: 20190124
  2. VENTOLIN RESPIRATOR [Concomitant]
     Indication: RESPIRATORY FAILURE
     Dosage: UNK
     Dates: start: 20180110, end: 20190207
  3. SPIOLTO RESPIMAT [Concomitant]
     Active Substance: OLODATEROL HYDROCHLORIDE\TIOTROPIUM BROMIDE MONOHYDRATE
     Indication: RESPIRATORY FAILURE
     Dosage: 2 X 2.5
     Dates: start: 20180110, end: 20190207

REACTIONS (1)
  - Respiratory failure [Fatal]
